FAERS Safety Report 7631615-5 (Version None)
Quarter: 2011Q3

REPORT INFORMATION
  Report Type: 
  Country: None (occurrence: None)
  Receive Date: 20110725
  Receipt Date: 20110120
  Transmission Date: 20111222
  Serious: No
  Sender: FDA-Public Use
  Company Number: US-BRISTOL-MYERS SQUIBB COMPANY-15503642

PATIENT
  Age: 54 Year
  Sex: Male

DRUGS (3)
  1. LOVENOX [Suspect]
     Indication: INTERNATIONAL NORMALISED RATIO DECREASED
     Route: 065
     Dates: start: 20110104
  2. LOVENOX [Suspect]
     Indication: CEREBROVASCULAR ACCIDENT
     Route: 065
     Dates: start: 20110104
  3. COUMADIN [Suspect]

REACTIONS (1)
  - EPISTAXIS [None]
